FAERS Safety Report 26139747 (Version 1)
Quarter: 2025Q4

REPORT INFORMATION
  Report Type: Spontaneous
  Country: US (occurrence: US)
  Receive Date: 20251210
  Receipt Date: 20251210
  Transmission Date: 20260117
  Serious: No
  Sender: Otter
  Company Number: US-OTTER-US-2025AST000156

PATIENT
  Sex: Male

DRUGS (2)
  1. SYMPAZAN [Suspect]
     Active Substance: CLOBAZAM
     Indication: Short-bowel syndrome
     Dosage: 1 DOSAGE FORM, QD
     Route: 065
  2. SYMPAZAN [Suspect]
     Active Substance: CLOBAZAM
     Indication: Epilepsy
     Dosage: 1 DOSAGE FORM, BID, WHEN HE HAS CLUSTERS
     Route: 065

REACTIONS (3)
  - Off label use [Unknown]
  - Drug effective for unapproved indication [Unknown]
  - Product availability issue [Unknown]
